FAERS Safety Report 5710046-9 (Version None)
Quarter: 2008Q2

REPORT INFORMATION
  Report Type: 
  Country: None (occurrence: None)
  Receive Date: 20080418
  Receipt Date: 20070912
  Transmission Date: 20081010
  Serious: No
  Sender: FDA-Public Use
  Company Number: US-ASTRAZENECA-2007UW21560

PATIENT
  Age: 66 Year
  Sex: Female
  Weight: 108.9 kg

DRUGS (3)
  1. TOPROL-XL [Suspect]
     Route: 048
     Dates: end: 20070601
  2. CRESTOR [Concomitant]
  3. VITAMIN CAP [Concomitant]

REACTIONS (4)
  - ABNORMAL DREAMS [None]
  - ARTHROSCOPIC SURGERY [None]
  - INSOMNIA [None]
  - NIGHTMARE [None]
